FAERS Safety Report 5833788-3 (Version None)
Quarter: 2008Q3

REPORT INFORMATION
  Report Type: 
  Country: None (occurrence: None)
  Receive Date: 20080805
  Receipt Date: 20080804
  Transmission Date: 20090109
  Serious: Yes (Other)
  Sender: FDA-Public Use
  Company Number: A0738084A

PATIENT

DRUGS (2)
  1. ALLI [Suspect]
     Indication: WEIGHT LOSS DIET
     Route: 048
  2. STEROID [Suspect]
     Indication: ASTHMA
     Route: 065

REACTIONS (7)
  - ABDOMINAL DISTENSION [None]
  - ASTHMA [None]
  - DYSPNOEA [None]
  - FLUID RETENTION [None]
  - SWELLING [None]
  - SWELLING FACE [None]
  - WEIGHT INCREASED [None]
